FAERS Safety Report 11090164 (Version 1)
Quarter: 2015Q2

REPORT INFORMATION
  Report Type: Spontaneous
  Country: GB (occurrence: GB)
  Receive Date: 20150505
  Receipt Date: 20150505
  Transmission Date: 20150821
  Serious: Yes (Other)
  Sender: FDA-Public Use
  Company Number: GB-TEVA-559866ACC

PATIENT
  Age: 61 Year
  Sex: Female
  Weight: 62 kg

DRUGS (14)
  1. AMITRIPTYLINE [Concomitant]
     Active Substance: AMITRIPTYLINE
  2. LIDOCAINE. [Concomitant]
     Active Substance: LIDOCAINE
  3. EMU OIL [Concomitant]
     Active Substance: EMU OIL
     Route: 045
  4. TETRACYCLINE [Concomitant]
     Active Substance: TETRACYCLINE
  5. HYOSCINE [Concomitant]
     Active Substance: SCOPOLAMINE
  6. BETAMETHASONE [Concomitant]
     Active Substance: BETAMETHASONE
  7. GABAPENTIN. [Concomitant]
     Active Substance: GABAPENTIN
  8. METRONIDAZOLE. [Concomitant]
     Active Substance: METRONIDAZOLE
  9. CLARITHROMYCIN. [Concomitant]
     Active Substance: CLARITHROMYCIN
  10. LEVOFLOXACIN. [Suspect]
     Active Substance: LEVOFLOXACIN
     Indication: HELICOBACTER INFECTION
     Dosage: 500
     Route: 048
     Dates: start: 20150304, end: 20150309
  11. PARACETAMOL [Concomitant]
     Active Substance: ACETAMINOPHEN
  12. DIHYDROCODEINE [Concomitant]
     Active Substance: DIHYDROCODEINE
  13. LINACLOTIDE [Concomitant]
     Active Substance: LINACLOTIDE
  14. RABEPRAZOLE [Concomitant]
     Active Substance: RABEPRAZOLE

REACTIONS (7)
  - Contusion [Not Recovered/Not Resolved]
  - Tendonitis [Not Recovered/Not Resolved]
  - Oral candidiasis [Not Recovered/Not Resolved]
  - Vulvovaginal candidiasis [Not Recovered/Not Resolved]
  - Peripheral swelling [Not Recovered/Not Resolved]
  - Pain in extremity [Not Recovered/Not Resolved]
  - Contraindicated drug administered [Unknown]
